FAERS Safety Report 7246233-0 (Version None)
Quarter: 2011Q1

REPORT INFORMATION
  Report Type: 
  Country: None (occurrence: None)
  Receive Date: 20110126
  Receipt Date: 20110119
  Transmission Date: 20110831
  Serious: Yes (Other)
  Sender: FDA-Public Use
  Company Number: A0894628A

PATIENT

DRUGS (1)
  1. VENTOLIN [Suspect]
     Indication: ASTHMA
     Route: 055
     Dates: start: 20100928

REACTIONS (5)
  - EXPIRED DRUG ADMINISTERED [None]
  - ASTHMA [None]
  - DYSPNOEA [None]
  - DRUG INEFFECTIVE [None]
  - PRODUCT QUALITY ISSUE [None]
